FAERS Safety Report 11914878 (Version 1)
Quarter: 2016Q1

REPORT INFORMATION
  Report Type: Spontaneous
  Country: US (occurrence: US)
  Receive Date: 20160113
  Receipt Date: 20160113
  Transmission Date: 20160526
  Serious: Yes (Disabling, Other)
  Sender: FDA-Public Use
  Company Number: US-ARBOR PHARMACEUTICALS, LLC-US-2016ARB000004

PATIENT

DRUGS (1)
  1. SOTALOL HYDROCHLORIDE. [Suspect]
     Active Substance: SOTALOL HYDROCHLORIDE
     Indication: ARRHYTHMIA
     Dosage: UNK

REACTIONS (11)
  - Arrhythmia [Unknown]
  - Toxicity to various agents [Unknown]
  - Ventricular tachycardia [Unknown]
  - Hypotension [Unknown]
  - Confusional state [Unknown]
  - Myocardial ischaemia [Unknown]
  - Cognitive disorder [Unknown]
  - Chest pain [Unknown]
  - Activities of daily living impaired [Unknown]
  - Toxic encephalopathy [Unknown]
  - Learning disorder [Unknown]
